FAERS Safety Report 5720568-2 (Version None)
Quarter: 2008Q2

REPORT INFORMATION
  Report Type: 
  Country: None (occurrence: None)
  Receive Date: 20080428
  Receipt Date: 20080428
  Transmission Date: 20081010
  Serious: Yes (Other)
  Sender: FDA-Public Use
  Company Number: None

PATIENT
  Sex: Female
  Weight: 68.0396 kg

DRUGS (9)
  1. VIVAGLOBIN [Suspect]
     Indication: IMMUNODEFICIENCY COMMON VARIABLE
     Dosage: 8 GRAMS IN 50 ML. ONE 4 HR INFUSION SQ
     Route: 058
     Dates: start: 20080411, end: 20080411
  2. VIVAGLOBIN [Suspect]
  3. ALTACE [Concomitant]
  4. ATENOLOL [Concomitant]
  5. ELMIRON [Concomitant]
  6. THYROID TAB [Concomitant]
  7. ALPRAZOLAM [Concomitant]
  8. FOCALIN XR [Concomitant]
  9. CLARITHROMYCIN XR [Concomitant]

REACTIONS (14)
  - ARTHRALGIA [None]
  - ASTHMA [None]
  - BLOOD ELECTROLYTES DECREASED [None]
  - BLOOD POTASSIUM DECREASED [None]
  - BLOOD SODIUM DECREASED [None]
  - COUGH [None]
  - ELECTROLYTE IMBALANCE [None]
  - FAMILIAL RISK FACTOR [None]
  - FATIGUE [None]
  - GLUCOSE URINE PRESENT [None]
  - MALAISE [None]
  - PARAESTHESIA [None]
  - PERICARDITIS [None]
  - RASH [None]
